FAERS Safety Report 19086128 (Version 2)
Quarter: 2021Q2

REPORT INFORMATION
  Report Type: Other
  Country: US (occurrence: US)
  Receive Date: 20210402
  Receipt Date: 20210420
  Transmission Date: 20210717
  Serious: No
  Sender: FDA-Public Use
  Company Number: US-ROCHE-2796471

PATIENT
  Sex: Male

DRUGS (1)
  1. OCREVUS [Suspect]
     Active Substance: OCRELIZUMAB
     Indication: MULTIPLE SCLEROSIS
     Dosage: DOT: 12/APR/2018, 26/APR/2018, 24/OCT/2019 AND 27/AUG/2020 (PRESCRIBED AS 300 MG ON DAY 1 AND DAY 15
     Route: 042
     Dates: start: 20191024, end: 20200827

REACTIONS (1)
  - JC polyomavirus test positive [Unknown]
